FAERS Safety Report 11397476 (Version 1)
Quarter: 2015Q3

REPORT INFORMATION
  Report Type: Spontaneous
  Country: FR (occurrence: FR)
  Receive Date: 20150819
  Receipt Date: 20150819
  Transmission Date: 20151125
  Serious: Yes (Hospitalization)
  Sender: FDA-Public Use
  Company Number: FR-GLAXOSMITHKLINE-FR2015GSK116423

PATIENT
  Age: 5 Year
  Sex: Male

DRUGS (1)
  1. NICOTINE. [Suspect]
     Active Substance: NICOTINE
     Indication: PRODUCT USED FOR UNKNOWN INDICATION
     Dosage: 21 MG
     Route: 062

REACTIONS (4)
  - Vomiting [Unknown]
  - Tobacco poisoning [Recovering/Resolving]
  - Accidental exposure to product [Unknown]
  - Nausea [Unknown]
